FAERS Safety Report 7639171-2 (Version None)
Quarter: 2011Q3

REPORT INFORMATION
  Report Type: 
  Country: None (occurrence: None)
  Receive Date: 20110727
  Receipt Date: 20110726
  Transmission Date: 20111222
  Serious: Yes (Other)
  Sender: FDA-Public Use
  Company Number: US-PFIZER INC-2011170134

PATIENT
  Sex: Female

DRUGS (2)
  1. CHANTIX [Suspect]
     Dosage: UNK
     Route: 048
     Dates: start: 20110101, end: 20110512
  2. CHANTIX [Suspect]
     Indication: SMOKING CESSATION THERAPY
     Dosage: 0.5 MG, 1X/DAY
     Route: 048
     Dates: start: 20110401, end: 20110101

REACTIONS (11)
  - PAIN [None]
  - FATIGUE [None]
  - MOVEMENT DISORDER [None]
  - STEVENS-JOHNSON SYNDROME [None]
  - LOSS OF CONSCIOUSNESS [None]
  - PANIC ATTACK [None]
  - HEADACHE [None]
  - CARDIOMYOPATHY [None]
  - CONFUSIONAL STATE [None]
  - LYMPHADENOPATHY [None]
  - DEPRESSION [None]
